FAERS Safety Report 13399741 (Version 2)
Quarter: 2019Q1

REPORT INFORMATION
  Report Type: Spontaneous
  Country: US (occurrence: US)
  Receive Date: 20170404
  Receipt Date: 20190126
  Transmission Date: 20190417
  Serious: No
  Sender: FDA-Public Use
  Company Number: ALCN2017US002457

PATIENT
  Sex: Male

DRUGS (1)
  1. GENTEAL PF [Suspect]
     Active Substance: HYPROMELLOSE 2910 (4000 MPA.S)
     Indication: PRODUCT USED FOR UNKNOWN INDICATION
     Dosage: UNK
     Route: 047

REACTIONS (2)
  - Conjunctivitis allergic [Recovered/Resolved]
  - Product quality issue [Unknown]
